FAERS Safety Report 10233582 (Version 1)
Quarter: 2014Q2

REPORT INFORMATION
  Report Type: Spontaneous
  Country: IT (occurrence: None)
  Receive Date: 20140610
  Receipt Date: 20140610
  Transmission Date: 20141212
  Serious: Yes (Death)
  Sender: FDA-Public Use
  Company Number: 2014HINLIT0520

PATIENT
  Age: 50 Year
  Sex: 0

DRUGS (3)
  1. EMTRICITABINE\TENOFOVIR [Suspect]
     Indication: ANTIRETROVIRAL THERAPY
  2. SORAFENIB [Suspect]
     Indication: PRODUCT USED FOR UNKNOWN INDICATION
  3. REYATAZ [Suspect]
     Indication: ANTIRETROVIRAL THERAPY

REACTIONS (4)
  - Hepatotoxicity [None]
  - Fatigue [None]
  - Drug interaction [None]
  - Oesophageal varices haemorrhage [None]
